FAERS Safety Report 9563836 (Version 1)
Quarter: 2013Q3

REPORT INFORMATION
  Report Type: Spontaneous
  Country: US (occurrence: None)
  Receive Date: 20130926
  Receipt Date: 20130926
  Transmission Date: 20140515
  Serious: Yes (Life-Threatening, Disabling, Other)
  Sender: FDA-Public Use
  Company Number: None

PATIENT
  Age: 10 Year
  Sex: Male
  Weight: 36.29 kg

DRUGS (1)
  1. GENGRAF [Suspect]
     Indication: FOCAL SEGMENTAL GLOMERULOSCLEROSIS
     Dosage: 1 PILL; TWICE DAILY
     Route: 048
     Dates: start: 20130819, end: 20130918

REACTIONS (3)
  - Protein urine present [None]
  - Immunosuppressant drug level decreased [None]
  - Product quality issue [None]
